FAERS Safety Report 13429608 (Version 1)
Quarter: 2017Q2

REPORT INFORMATION
  Report Type: Spontaneous
  Country: US (occurrence: US)
  Receive Date: 20170412
  Receipt Date: 20170412
  Transmission Date: 20170830
  Serious: Yes (Death)
  Sender: FDA-Public Use
  Company Number: US-ASTRAZENECA-2017SE35586

PATIENT
  Age: 56 Year
  Sex: Male

DRUGS (2)
  1. INVOKANA [Concomitant]
     Active Substance: CANAGLIFLOZIN
     Dosage: UNKNOWN
     Route: 065
  2. FARXIGA [Suspect]
     Active Substance: DAPAGLIFLOZIN PROPANEDIOL
     Route: 048

REACTIONS (2)
  - Cardiac disorder [Unknown]
  - Death [Fatal]

NARRATIVE: CASE EVENT DATE: 201701
